FAERS Safety Report 12590343 (Version 1)
Quarter: 2016Q3

REPORT INFORMATION
  Report Type: Spontaneous
  Country: CA (occurrence: CA)
  Receive Date: 20160725
  Receipt Date: 20160725
  Transmission Date: 20161109
  Serious: Yes (Other)
  Sender: FDA-Public Use
  Company Number: CA-PURDUE PHARMA-CAN-2016-0006898

PATIENT
  Age: 14 Year
  Sex: Female

DRUGS (2)
  1. BIPHENTIN 60 MG CAPSULE [Suspect]
     Active Substance: METHYLPHENIDATE HYDROCHLORIDE
     Indication: ATTENTION DEFICIT/HYPERACTIVITY DISORDER
     Dosage: 60 MG, UNK
     Route: 065
  2. BIPHENTIN 60 MG CAPSULE [Suspect]
     Active Substance: METHYLPHENIDATE HYDROCHLORIDE
     Indication: MAJOR DEPRESSION

REACTIONS (5)
  - Psychotic disorder [Unknown]
  - Hallucination, visual [Unknown]
  - Cognitive disorder [Unknown]
  - Illusion [Unknown]
  - Hallucination, auditory [Unknown]
